FAERS Safety Report 4348020-X (Version None)
Quarter: 2004Q2

REPORT INFORMATION
  Report Type: 
  Country: None (occurrence: None)
  Receive Date: 20040422
  Receipt Date: 20040406
  Transmission Date: 20050107
  Serious: Yes (Death, Hospitalization, Other)
  Sender: FDA-Public Use
  Company Number: 2003-BP-00866BP

PATIENT
  Sex: Male

DRUGS (8)
  1. VIRAMUNE [Suspect]
     Indication: PROPHYLAXIS AGAINST HIV INFECTION
     Dosage: 0.7 ML (NR, ONCE), PO
     Route: 048
     Dates: start: 20021203, end: 20021203
  2. VIRAMUNE [Suspect]
     Indication: PROPHYLAXIS AGAINST HIV INFECTION
     Dosage: 200 MG, (200 MG, ONCE),IU
     Route: 015
     Dates: start: 20021201, end: 20021201
  3. X-PENICILLIN [Concomitant]
  4. GENTAMICIN [Concomitant]
  5. HYDROCORTISONE [Concomitant]
  6. BACTRIM [Concomitant]
  7. CHLOROQUINE (CHLOROQUINE) [Concomitant]
  8. ACETAMINOPHEN [Concomitant]

REACTIONS (9)
  - ABDOMINAL PAIN [None]
  - ANAEMIA NEONATAL [None]
  - CHEST PAIN [None]
  - DIARRHOEA NEONATAL [None]
  - MATERNAL DRUGS AFFECTING FOETUS [None]
  - NEONATAL DISORDER [None]
  - NEONATAL PNEUMONIA [None]
  - PREMATURE BABY [None]
  - SEPSIS NEONATAL [None]
